FAERS Safety Report 7432852-5 (Version None)
Quarter: 2011Q2

REPORT INFORMATION
  Report Type: 
  Country: None (occurrence: None)
  Receive Date: 20110422
  Receipt Date: 20110414
  Transmission Date: 20111010
  Serious: Yes (Other)
  Sender: FDA-Public Use
  Company Number: US-AMGEN-USASP2011018034

PATIENT
  Age: 54 Year
  Sex: Female

DRUGS (5)
  1. ENBREL [Suspect]
     Indication: PSORIATIC ARTHROPATHY
     Dosage: 50 MG, 2 TIMES/WK
     Route: 058
     Dates: start: 20110324
  2. ENBREL [Suspect]
     Indication: PSORIASIS
  3. ENBREL [Suspect]
     Indication: DERMATITIS CONTACT
  4. SYNTHROID [Concomitant]
  5. CETIRIZINE HCL [Concomitant]

REACTIONS (13)
  - HYPOAESTHESIA [None]
  - PSORIASIS [None]
  - VISION BLURRED [None]
  - DERMATITIS CONTACT [None]
  - FEAR [None]
  - NERVOUSNESS [None]
  - MUSCULAR WEAKNESS [None]
  - JOINT STIFFNESS [None]
  - PARAESTHESIA [None]
  - STRESS [None]
  - DEPRESSION [None]
  - ASTHENIA [None]
  - TREMOR [None]
